FAERS Safety Report 9176482 (Version 1)
Quarter: 2013Q1

REPORT INFORMATION
  Report Type: Spontaneous
  Country: US (occurrence: None)
  Receive Date: 20130319
  Receipt Date: 20130319
  Transmission Date: 20140127
  Serious: Yes (Hospitalization)
  Sender: FDA-Public Use
  Company Number: AUR-APL-2013-02148

PATIENT
  Age: 29 Year
  Sex: Male

DRUGS (10)
  1. ATENOLOL (ATENOLOL) [Suspect]
     Indication: PRODUCT USED FOR UNKNOWN INDICATION
  2. HYDROCHLOROTHIAZIDE [Suspect]
     Indication: PRODUCT USED FOR UNKNOWN INDICATION
  3. VANDETANIB (VANDETANIE) [Suspect]
     Indication: MEDULLARY THYROID CANCER
     Route: 048
     Dates: start: 20130114, end: 20130120
  4. ALBUTEROL (SALBUTAMOL) [Concomitant]
  5. AMLODIPINE (AMLODIPINE) [Concomitant]
  6. PERCOCET (TYLOX/00446701) [Concomitant]
  7. BUSPIRONE (BUSPIRONE) [Concomitant]
  8. LEXAPRO (ESCITALOPRAM OXALATE) [Concomitant]
  9. LOSARTAN (LOSARTAN) [Concomitant]
  10. CYCLOBENZAPRINE [Concomitant]

REACTIONS (2)
  - Hypertensive crisis [None]
  - Acne [None]
